FAERS Safety Report 9184993 (Version 2)
Quarter: 2013Q2

REPORT INFORMATION
  Report Type: Report from Study
  Country: CA (occurrence: CA)
  Receive Date: 20130325
  Receipt Date: 20130610
  Transmission Date: 20140414
  Serious: Yes (Other)
  Sender: FDA-Public Use
  Company Number: CA-ROCHE-756137

PATIENT
  Age: 63 Year
  Sex: Female
  Weight: 66 kg

DRUGS (22)
  1. RITUXIMAB [Suspect]
     Indication: RHEUMATOID ARTHRITIS
     Dosage: FREQUENCY: DAY 1, 15, FORM: INFUSION
     Route: 042
  2. RITUXIMAB [Suspect]
     Dosage: FREQUENCY: DAY 1 AND 15.
     Route: 042
     Dates: start: 20091027, end: 20110222
  3. ACTEMRA [Suspect]
     Indication: RHEUMATOID ARTHRITIS
     Route: 042
     Dates: start: 20120710
  4. CELEBREX [Concomitant]
  5. ALTACE [Concomitant]
  6. PAXIL [Concomitant]
  7. OMEPRAZOLE [Concomitant]
  8. LORAZEPAM [Concomitant]
  9. ZOPICLONE [Concomitant]
  10. FLOVENT [Concomitant]
  11. FLONASE [Concomitant]
  12. VENTOLIN [Concomitant]
  13. METHOTREXATE [Concomitant]
  14. OXYTROL [Concomitant]
  15. DETROL [Concomitant]
  16. NEXIUM [Concomitant]
  17. FUROSEMIDE [Concomitant]
  18. AMITRIPTYLINE [Concomitant]
  19. TYLENOL #3 (CANADA) [Concomitant]
  20. FLUTICASONE [Concomitant]
  21. SALBUTAMOL [Concomitant]
  22. TESTOSTERON [Concomitant]

REACTIONS (5)
  - Incisional hernia [Not Recovered/Not Resolved]
  - Urinary bladder haemorrhage [Not Recovered/Not Resolved]
  - Impaired healing [Not Recovered/Not Resolved]
  - Staphylococcal infection [Not Recovered/Not Resolved]
  - Incisional hernia [Not Recovered/Not Resolved]
